FAERS Safety Report 13328916 (Version 1)
Quarter: 2017Q1

REPORT INFORMATION
  Report Type: Spontaneous
  Country: ES (occurrence: ES)
  Receive Date: 20170313
  Receipt Date: 20170313
  Transmission Date: 20170428
  Serious: Yes (Hospitalization)
  Sender: FDA-Public Use
  Company Number: ES-SCIEGEN PHARMACEUTICALS INC-2017SCILIT00176

PATIENT
  Age: 53 Year
  Sex: Female

DRUGS (2)
  1. PRAMIPEXOLE DIHYDROCHLORIDE TABLETS [Suspect]
     Active Substance: PRAMIPEXOLE DIHYDROCHLORIDE
     Indication: PARKINSON^S DISEASE
     Dosage: (UP TO A DOSE OF 2.1 MG/DAY)
     Route: 065
  2. LEVODOPA-CARBIDOPA [Concomitant]
     Active Substance: CARBIDOPA\LEVODOPA
     Indication: PARKINSON^S DISEASE
     Dosage: A DOSE OF 300-75
     Route: 065

REACTIONS (1)
  - Jealous delusion [Recovering/Resolving]
